FAERS Safety Report 11089914 (Version 1)
Quarter: 2015Q2

REPORT INFORMATION
  Report Type: Spontaneous
  Country: US (occurrence: None)
  Receive Date: 20150501
  Receipt Date: 20150501
  Transmission Date: 20150821
  Serious: Yes (Other)
  Sender: FDA-Public Use
  Company Number: USW201503-000070

PATIENT
  Age: 77 Year
  Sex: Male
  Weight: 72.57 kg

DRUGS (1)
  1. APOKYN [Suspect]
     Active Substance: APOMORPHINE HYDROCHLORIDE
     Indication: PARKINSON^S DISEASE
     Dosage: 0.4, 4 TIMES A DAY;
     Dates: start: 20150227

REACTIONS (6)
  - Hallucination, visual [None]
  - Suicidal ideation [None]
  - Drug ineffective [None]
  - Heart rate increased [None]
  - Muscle strain [None]
  - Chest pain [None]

NARRATIVE: CASE EVENT DATE: 201504
